FAERS Safety Report 22197899 (Version 1)
Quarter: 2023Q2

REPORT INFORMATION
  Report Type: Spontaneous
  Country: US (occurrence: None)
  Receive Date: 20230411
  Receipt Date: 20230411
  Transmission Date: 20230722
  Serious: Yes (Death)
  Sender: FDA-Public Use
  Company Number: None

PATIENT
  Age: 48 Year
  Sex: Male
  Weight: 87.75 kg

DRUGS (1)
  1. AZELASTINE HYDROCHLORIDE [Suspect]
     Active Substance: AZELASTINE HYDROCHLORIDE
     Indication: Multiple allergies
     Dosage: OTHER STRENGTH : 0.1%;?OTHER QUANTITY : 2 SPRAY(S);?FREQUENCY : TWICE A DAY;?OTHER ROUTE : INHALED N
     Route: 050
     Dates: start: 20230322, end: 20230322

REACTIONS (6)
  - Throat irritation [None]
  - Taste disorder [None]
  - Insomnia [None]
  - Dyspnoea [None]
  - Fall [None]
  - Pallor [None]

NARRATIVE: CASE EVENT DATE: 20230322
